FAERS Safety Report 13738902 (Version 1)
Quarter: 2017Q3

REPORT INFORMATION
  Report Type: Report from Study
  Country: US (occurrence: US)
  Receive Date: 20170710
  Receipt Date: 20170710
  Transmission Date: 20171127
  Serious: No
  Sender: FDA-Public Use
  Company Number: US-SAOL THERAPEUTICS-2017SAO00679

PATIENT
  Sex: Male

DRUGS (16)
  1. DILAUDID [Suspect]
     Active Substance: HYDROMORPHONE HYDROCHLORIDE
     Dosage: 0.4589 MG, \DAY
     Route: 037
     Dates: start: 20120223, end: 20120319
  2. DILAUDID [Suspect]
     Active Substance: HYDROMORPHONE HYDROCHLORIDE
     Dosage: 0.2502 MG, \DAY
     Route: 037
     Dates: start: 20120319
  3. BUPIVACAINE. [Suspect]
     Active Substance: BUPIVACAINE
     Dosage: 10.645 MG, \DAY
     Route: 037
     Dates: start: 20120319
  4. DROPERIDOL. [Suspect]
     Active Substance: DROPERIDOL
     Dosage: 106.72 ?G, \DAY
     Route: 037
     Dates: start: 20120223, end: 20120319
  5. COMPOUNDED BACLOFEN [Suspect]
     Active Substance: BACLOFEN
     Dosage: 71.15 ?G, \DAY
     Route: 037
     Dates: start: 20120223, end: 20120319
  6. COMPOUNDED BACLOFEN [Suspect]
     Active Substance: BACLOFEN
     Dosage: 91.78 ?G, \DAY
     Route: 037
     Dates: start: 20120223, end: 20120319
  7. BUPIVACAINE. [Suspect]
     Active Substance: BUPIVACAINE
     Dosage: 13.767 MG, \DAY
     Route: 037
     Dates: start: 20120223, end: 20120319
  8. DROPERIDOL. [Suspect]
     Active Substance: DROPERIDOL
     Dosage: 75.07 ?G, \DAY
     Route: 037
     Dates: start: 20120319
  9. COMPOUNDED BACLOFEN [Suspect]
     Active Substance: BACLOFEN
     Dosage: 70.97 ?G, \DAY
     Route: 037
     Dates: start: 20120319
  10. DILAUDID [Suspect]
     Active Substance: HYDROMORPHONE HYDROCHLORIDE
     Dosage: 0.3557 MG, \DAY
     Route: 037
     Dates: start: 20120223, end: 20120319
  11. BUPIVACAINE. [Suspect]
     Active Substance: BUPIVACAINE
     Dosage: 7.507 MG, \DAY
     Dates: start: 20120319
  12. COMPOUNDED BACLOFEN [Suspect]
     Active Substance: BACLOFEN
     Dosage: 50.05 ?G, \DAY
     Route: 037
     Dates: start: 20120319
  13. DROPERIDOL. [Suspect]
     Active Substance: DROPERIDOL
     Dosage: 106.45 ?G, \DAY
     Route: 037
     Dates: start: 20120319
  14. DILAUDID [Suspect]
     Active Substance: HYDROMORPHONE HYDROCHLORIDE
     Dosage: 0.3548 MG, \DAY
     Route: 037
     Dates: start: 20120319
  15. BUPIVACAINE. [Suspect]
     Active Substance: BUPIVACAINE
     Dosage: 10.672 MG, \DAY
     Route: 037
     Dates: start: 20120223, end: 20120319
  16. DROPERIDOL. [Suspect]
     Active Substance: DROPERIDOL
     Dosage: 137.67 ?G, \DAY
     Route: 037
     Dates: start: 20120223, end: 20120319

REACTIONS (2)
  - Hyperhidrosis [Recovered/Resolved]
  - Dizziness [Recovered/Resolved]
